FAERS Safety Report 9993913 (Version 2)
Quarter: 2014Q1

REPORT INFORMATION
  Report Type: Spontaneous
  Country: US (occurrence: US)
  Receive Date: 20140310
  Receipt Date: 20140310
  Transmission Date: 20141002
  Serious: No
  Sender: FDA-Public Use
  Company Number: US-AMGEN-USASP2013030537

PATIENT
  Age: 53 Year
  Sex: Female
  Weight: 95 kg

DRUGS (4)
  1. SENSIPAR [Suspect]
     Indication: HYPERPARATHYROIDISM SECONDARY
     Dosage: 30 MG, QD
     Route: 048
     Dates: start: 20130401, end: 20130408
  2. RENVELA [Concomitant]
     Indication: BLOOD PHOSPHORUS INCREASED
     Dosage: 800 MG, TID
     Route: 048
     Dates: start: 20120104
  3. ATENOLOL [Concomitant]
     Indication: HYPERTENSION
     Dosage: 50 NG, QD
     Route: 048
     Dates: start: 20010104
  4. FOSRENOL [Concomitant]
     Indication: BLOOD PHOSPHORUS INCREASED
     Dosage: 1000 MG, TID
     Dates: start: 20120104

REACTIONS (2)
  - Abdominal discomfort [Unknown]
  - Abdominal pain [Recovered/Resolved]
